FAERS Safety Report 19505814 (Version 2)
Quarter: 2022Q1

REPORT INFORMATION
  Report Type: Other
  Country: US (occurrence: US)
  Receive Date: 20210708
  Receipt Date: 20220125
  Transmission Date: 20220423
  Serious: No
  Sender: FDA-Public Use
  Company Number: US-NEUROCRINE BIOSCIENCES INC.-2021NBI03394

PATIENT

DRUGS (7)
  1. INGREZZA [Suspect]
     Active Substance: VALBENAZINE
     Indication: Major depression
     Dosage: 40 MILLIGRAM, QD
     Route: 048
     Dates: start: 20210511, end: 20210610
  2. ACAMPROSATE [Concomitant]
     Active Substance: ACAMPROSATE
     Dosage: UNK
  3. BENZTROPINE [Concomitant]
     Active Substance: BENZTROPINE
     Dosage: UNK
  4. DULOXETINE [Concomitant]
     Active Substance: DULOXETINE
     Dosage: UNK
  5. GABAPENTIN [Concomitant]
     Active Substance: GABAPENTIN
     Dosage: UNK
  6. PROPRANOLOL [Concomitant]
     Active Substance: PROPRANOLOL HYDROCHLORIDE
     Dosage: UNK
  7. VITAMIN B1 [Concomitant]
     Active Substance: THIAMINE HYDROCHLORIDE
     Dosage: UNK

REACTIONS (2)
  - Rash erythematous [Unknown]
  - Off label use [Unknown]

NARRATIVE: CASE EVENT DATE: 20210623
